FAERS Safety Report 24826977 (Version 3)
Quarter: 2025Q1

REPORT INFORMATION
  Report Type: Report from Study
  Country: US (occurrence: US)
  Receive Date: 20250109
  Receipt Date: 20250131
  Transmission Date: 20250409
  Serious: Yes (Other)
  Sender: ABBVIE
  Company Number: US-ABBVIE-6071126

PATIENT
  Age: 61 Year
  Sex: Male

DRUGS (3)
  1. HUMIRA [Suspect]
     Active Substance: ADALIMUMAB
     Indication: Crohn^s disease
     Route: 058
  2. INFLECTRA [Suspect]
     Active Substance: INFLIXIMAB-DYYB
     Indication: Product used for unknown indication
     Route: 065
  3. PFIZER-BIONTECH COVID-19 VACCINE [Suspect]
     Active Substance: TOZINAMERAN
     Indication: COVID-19 immunisation
     Route: 065

REACTIONS (15)
  - Seizure [Unknown]
  - Large intestinal stenosis [Unknown]
  - Drug hypersensitivity [Unknown]
  - Fall [Unknown]
  - Crohn^s disease [Unknown]
  - Lower limb fracture [Unknown]
  - Unevaluable event [Unknown]
  - Hypoaesthesia [Unknown]
  - Hypoaesthesia oral [Unknown]
  - Cyst [Unknown]
  - Hypersensitivity [Unknown]
  - Infection [Unknown]
  - Osteoarthritis [Unknown]
  - Colitis ulcerative [Unknown]
  - Allergy to vaccine [Unknown]

NARRATIVE: CASE EVENT DATE: 20211101
